FAERS Safety Report 16393646 (Version 1)
Quarter: 2019Q3

REPORT INFORMATION
  Report Type: Spontaneous
  Country: US (occurrence: US)
  Receive Date: 20190603
  Receipt Date: 20190603
  Transmission Date: 20191004
  Serious: Yes (Death)
  Sender: FDA-Public Use
  Company Number: None

PATIENT
  Age: 53 Year
  Sex: Female

DRUGS (1)
  1. NEULASTA [Suspect]
     Active Substance: PEGFILGRASTIM
     Indication: CHOLANGIOCARCINOMA
     Route: 062
     Dates: start: 20181214, end: 20181214

REACTIONS (1)
  - Death [None]

NARRATIVE: CASE EVENT DATE: 20190531
